FAERS Safety Report 8351476-9 (Version None)
Quarter: 2012Q2

REPORT INFORMATION
  Report Type: 
  Country: None (occurrence: None)
  Receive Date: 20120510
  Receipt Date: 20120508
  Transmission Date: 20120825
  Serious: Yes (Death, Hospitalization)
  Sender: FDA-Public Use
  Company Number: US-ASTRAZENECA-2011SE41545

PATIENT
  Age: 61 Year
  Sex: Female

DRUGS (44)
  1. ISOSORBIDE MONONITRATE [Concomitant]
  2. PREDNISONE TAB [Concomitant]
  3. AZITHORMYCIN [Concomitant]
  4. WARFARIN SODIUM [Concomitant]
  5. ENALAPRIL MALEATE [Concomitant]
  6. CEFADROXIL [Concomitant]
  7. NEXIUM [Suspect]
     Indication: ABDOMINAL PAIN UPPER
     Route: 048
  8. LUSPIRONE HCL [Concomitant]
  9. GLIMEPIRIDE [Concomitant]
  10. EUISTA [Concomitant]
     Indication: MENOPAUSE
  11. FLUTICASONE FUROATE [Concomitant]
     Dosage: 50 MCG
  12. AMIODARONE HCL [Concomitant]
  13. CORG [Concomitant]
  14. CEFPROZIL [Concomitant]
  15. SPIRONOLACTONE [Concomitant]
  16. HYDROCOONE/APAP [Concomitant]
     Indication: PAIN
     Dosage: 7.5/750
  17. ALLOPREERINOL [Concomitant]
     Indication: GOUT
  18. PLAUIX [Concomitant]
     Indication: CARDIAC DISORDER
  19. PLAUIX [Concomitant]
     Indication: APOLIPOPROTEIN ABNORMAL
  20. CLINDAMYCIN HCL [Concomitant]
  21. NEXIUM [Suspect]
     Route: 048
     Dates: start: 20030501, end: 20090401
  22. METOLAZONE [Concomitant]
  23. HYZAAR [Concomitant]
  24. LOOASTATIN [Concomitant]
  25. CARISOPRODOL [Concomitant]
  26. AMBIEN [Concomitant]
     Indication: SLEEP DISORDER
  27. FUROSEMIDE [Concomitant]
  28. DIOUAN [Concomitant]
  29. FEXOFENADINE [Concomitant]
  30. PROMETHAZINE [Concomitant]
  31. NEXIUM [Suspect]
     Indication: GASTROOESOPHAGEAL REFLUX DISEASE
     Route: 048
  32. NEXIUM [Suspect]
     Route: 048
     Dates: start: 20030501, end: 20090401
  33. RANITIDINE [Concomitant]
     Dates: start: 20090401, end: 20110901
  34. PRAUASTATIN SODIUM [Concomitant]
  35. TEMAZEPAM [Concomitant]
  36. ALTACE [Concomitant]
  37. RAZADYNE [Concomitant]
     Indication: MEMORY IMPAIRMENT
  38. SPIRIUA [Concomitant]
     Dosage: 18 MCG
  39. POTASSIUM CL [Concomitant]
  40. ALPRAZOLAM [Concomitant]
  41. LYRICA [Concomitant]
  42. NITROGLYCERIN [Concomitant]
     Indication: CARDIAC DISORDER
  43. COZZAAR [Concomitant]
  44. AMITRIPTYLINE HCL [Concomitant]

REACTIONS (9)
  - LOWER LIMB FRACTURE [None]
  - UPPER LIMB FRACTURE [None]
  - TYPE 2 DIABETES MELLITUS [None]
  - CARDIAC FAILURE CONGESTIVE [None]
  - OSTEOPOROSIS [None]
  - RIB FRACTURE [None]
  - CORONARY ARTERY DISEASE [None]
  - RENAL FAILURE CHRONIC [None]
  - FRACTURE [None]
